FAERS Safety Report 10881692 (Version 1)
Quarter: 2015Q1

REPORT INFORMATION
  Report Type: Spontaneous
  Country: IT (occurrence: IT)
  Receive Date: 20150303
  Receipt Date: 20150303
  Transmission Date: 20150721
  Serious: Yes (Other)
  Sender: FDA-Public Use
  Company Number: IT-BAYER-2015-029511

PATIENT
  Age: 75 Year
  Sex: Male

DRUGS (1)
  1. CETRAXAL [Suspect]
     Active Substance: CIPROFLOXACIN
     Indication: PROPHYLAXIS
     Dosage: 1000 MG, ONCE
     Route: 048
     Dates: start: 20140925, end: 20140925

REACTIONS (3)
  - Prurigo [Recovered/Resolved]
  - Cyanosis [Recovered/Resolved]
  - Dysphagia [Recovered/Resolved]

NARRATIVE: CASE EVENT DATE: 20140925
